FAERS Safety Report 17841419 (Version 2)
Quarter: 2020Q2

REPORT INFORMATION
  Report Type: Spontaneous
  Country: BE (occurrence: BE)
  Receive Date: 20200529
  Receipt Date: 20200625
  Transmission Date: 20200714
  Serious: Yes (Death, Hospitalization, Other)
  Sender: FDA-Public Use
  Company Number: BE-ASTRAZENECA-2020SE69280

PATIENT
  Age: 80 Year
  Sex: Female

DRUGS (1)
  1. TAGRISSO [Suspect]
     Active Substance: OSIMERTINIB
     Dosage: 80.0MG UNKNOWN
     Route: 048
     Dates: start: 201902

REACTIONS (4)
  - Dyspnoea [Unknown]
  - SARS-CoV-2 test negative [Unknown]
  - Generalised oedema [Unknown]
  - Sudden death [Fatal]

NARRATIVE: CASE EVENT DATE: 202005
